FAERS Safety Report 10006230 (Version 1)
Quarter: 2014Q1

REPORT INFORMATION
  Report Type: Spontaneous
  Country: US (occurrence: US)
  Receive Date: 20140313
  Receipt Date: 20140313
  Transmission Date: 20141002
  Serious: Yes (Other)
  Sender: FDA-Public Use
  Company Number: US-PFIZER INC-2014071776

PATIENT
  Age: 53 Year
  Sex: Female
  Weight: 95.24 kg

DRUGS (2)
  1. EFFEXOR XR [Suspect]
     Indication: DEPRESSION
     Dosage: 150 MG, 2X/DAY
  2. EFFEXOR XR [Suspect]
     Dosage: 150 MG, 2X/DAY
     Dates: start: 2014

REACTIONS (5)
  - Fall [Unknown]
  - Back injury [Unknown]
  - Dizziness [Unknown]
  - Headache [Unknown]
  - Drug ineffective [Unknown]
